FAERS Safety Report 9037535 (Version 1)
Quarter: 2013Q1

REPORT INFORMATION
  Report Type: Report from Study
  Country: US (occurrence: US)
  Receive Date: 20130129
  Receipt Date: 20130129
  Transmission Date: 20140127
  Serious: No
  Sender: FDA-Public Use
  Company Number: US-ABBOTT-12P-163-0895779-00

PATIENT
  Age: 58 Year
  Sex: Female

DRUGS (19)
  1. HUMIRA 40 MG/0.8 ML PEN [Suspect]
     Indication: CROHN^S DISEASE
     Dates: start: 20111122
  2. SYNTHROID [Concomitant]
     Indication: HYPOTHYROIDISM
  3. OMEPRAZOLE [Concomitant]
     Indication: GASTROOESOPHAGEAL REFLUX DISEASE
  4. LYRICA [Concomitant]
     Indication: PAIN MANAGEMENT
  5. MICARDIS [Concomitant]
     Indication: BLOOD PRESSURE
  6. DICLOFENAC [Concomitant]
     Indication: ARTHRITIS
  7. METHADONE [Concomitant]
     Indication: PAIN MANAGEMENT
     Dosage: 2MG, 6 TABS DAILY, IN DIVIDED DOSES
  8. HYDROCODONE [Concomitant]
     Indication: PAIN MANAGEMENT
     Dosage: 10/500MG, 4 TIMES DAILY
  9. SKELAXIN [Concomitant]
     Indication: PAIN
     Dosage: 4 TIMES DAILY, AS NEEDED
  10. LIDODERM [Concomitant]
     Indication: PAIN
     Dosage: PATCHES, 3 TIMES DAILY
  11. ESTRADIOL COMBINATION [Concomitant]
     Indication: HORMONE REPLACEMENT THERAPY
     Dosage: 1.0/0.5MG, DAILY
  12. ALIGN [Concomitant]
     Indication: PROBIOTIC THERAPY
     Dosage: ONCE DAILY
  13. POLY IRON [Concomitant]
     Indication: ANAEMIA
  14. MULTIVITAMINS [Concomitant]
     Indication: PRODUCT USED FOR UNKNOWN INDICATION
     Dosage: ONCE DAILY
  15. CALCIUM WITH VITAMIN D [Concomitant]
     Indication: PRODUCT USED FOR UNKNOWN INDICATION
     Dosage: ONCE DAILY
  16. POTASSIUM [Concomitant]
     Indication: PRODUCT USED FOR UNKNOWN INDICATION
     Dosage: ONCE DAILY
  17. MAGNESIUM [Concomitant]
     Indication: PRODUCT USED FOR UNKNOWN INDICATION
     Dosage: ONCE DAILY
  18. LYSINE [Concomitant]
     Indication: PRODUCT USED FOR UNKNOWN INDICATION
     Dosage: ONCE DAILY
  19. B12 [Concomitant]
     Indication: VITAMIN SUPPLEMENTATION

REACTIONS (1)
  - Injection site pain [Recovered/Resolved]
